FAERS Safety Report 7031824-2 (Version None)
Quarter: 2010Q4

REPORT INFORMATION
  Report Type: 
  Country: None (occurrence: None)
  Receive Date: 20101007
  Receipt Date: 20100928
  Transmission Date: 20110411
  Serious: No
  Sender: FDA-Public Use
  Company Number: US-BIOGENIDEC-2010BI034174

PATIENT
  Age: 33 Year
  Sex: Female

DRUGS (3)
  1. TYSABRI [Suspect]
     Indication: MULTIPLE SCLEROSIS
     Route: 042
     Dates: start: 20071113, end: 20071113
  2. TYSABRI [Suspect]
     Route: 042
     Dates: start: 20080701, end: 20080923
  3. TYSABRI [Suspect]
     Route: 042
     Dates: start: 20100211

REACTIONS (1)
  - OPTIC NEURITIS [None]
